FAERS Safety Report 21671987 (Version 2)
Quarter: 2022Q4

REPORT INFORMATION
  Report Type: Spontaneous
  Country: CA (occurrence: CA)
  Receive Date: 20221202
  Receipt Date: 20221213
  Transmission Date: 20230113
  Serious: Yes (Life-Threatening, Hospitalization)
  Sender: FDA-Public Use
  Company Number: CA-ALKEM LABORATORIES LIMITED-CA-ALKEM-2022-13583

PATIENT
  Age: 17 Month
  Sex: Female
  Weight: 12.8 kg

DRUGS (1)
  1. OLANZAPINE [Suspect]
     Active Substance: OLANZAPINE
     Indication: Antipsychotic therapy
     Dosage: UNK (20-50 MILLIGRAM) (1.6- 3.9MG/KG) (2-5 TABLETS) LEVEL 137NG/ML (24  HRS POST INGESTION)
     Route: 048

REACTIONS (9)
  - Agitation [Recovered/Resolved]
  - Ataxia [Recovered/Resolved]
  - Feeling jittery [Recovered/Resolved]
  - Lethargy [Recovered/Resolved]
  - Pyrexia [Recovered/Resolved]
  - Somnolence [Recovered/Resolved]
  - Tremor [Recovered/Resolved]
  - Accidental exposure to product by child [Unknown]
  - Overdose [Unknown]
